FAERS Safety Report 23544514 (Version 1)
Quarter: 2024Q1

REPORT INFORMATION
  Report Type: Spontaneous
  Country: US (occurrence: US)
  Receive Date: 20240220
  Receipt Date: 20240220
  Transmission Date: 20240409
  Serious: Yes (Hospitalization)
  Sender: FDA-Public Use
  Company Number: US-JNJFOC-20240230682

PATIENT
  Age: 69 Year
  Sex: Female

DRUGS (1)
  1. TECVAYLI [Suspect]
     Active Substance: TECLISTAMAB-CQYV
     Indication: Product used for unknown indication
     Dosage: 1.5MG/KG
     Route: 058

REACTIONS (3)
  - Pneumonitis [Unknown]
  - Cytokine release syndrome [Unknown]
  - Pneumonia [Unknown]
